FAERS Safety Report 8383864-9 (Version None)
Quarter: 2012Q2

REPORT INFORMATION
  Report Type: 
  Country: None (occurrence: None)
  Receive Date: 20120524
  Receipt Date: 20120516
  Transmission Date: 20120825
  Serious: Yes (Death, Hospitalization, Other)
  Sender: FDA-Public Use
  Company Number: US-ACTELION-A-NJ2011-55770

PATIENT

DRUGS (19)
  1. ASPIRIN [Concomitant]
  2. LIPITOR [Concomitant]
  3. PERCOCET [Concomitant]
  4. LISINOPRIL [Concomitant]
  5. SILVER SULFADIAZINE [Concomitant]
  6. VITAMIN K TAB [Concomitant]
  7. PROTONIX [Concomitant]
  8. TOPROL-XL [Concomitant]
  9. TRACLEER [Suspect]
     Dosage: 62.5 MG, BID
     Route: 048
     Dates: start: 20100610, end: 20100819
  10. DILTIAZEM [Concomitant]
  11. TRACLEER [Suspect]
     Dosage: UNK
     Route: 048
     Dates: start: 20100323
  12. RENVELA [Concomitant]
  13. COUMADIN [Concomitant]
  14. AGGRENOX [Concomitant]
  15. SENSIPAR [Concomitant]
  16. TRACLEER [Suspect]
     Indication: PULMONARY ARTERIAL HYPERTENSION
     Dosage: 125 MG, BID
     Route: 048
     Dates: start: 20100820, end: 20120507
  17. NEPHROCAPS [Concomitant]
  18. EPOGEN [Concomitant]
  19. POTASSIUM CHLORIDE [Concomitant]

REACTIONS (14)
  - ALANINE AMINOTRANSFERASE INCREASED [None]
  - ARTERIAL BYPASS OPERATION [None]
  - ASPARTATE AMINOTRANSFERASE INCREASED [None]
  - LIVER FUNCTION TEST ABNORMAL [None]
  - DIARRHOEA [None]
  - PERITONEAL DIALYSIS [None]
  - ABDOMINAL PAIN [None]
  - OEDEMA PERIPHERAL [None]
  - DEATH [None]
  - POST PROCEDURAL COMPLICATION [None]
  - BLOOD ALKALINE PHOSPHATASE INCREASED [None]
  - ARTERIOVENOUS GRAFT SITE INFECTION [None]
  - RENAL FAILURE [None]
  - BLOOD BILIRUBIN INCREASED [None]
